FAERS Safety Report 19076185 (Version 1)
Quarter: 2021Q1

REPORT INFORMATION
  Report Type: Report from Study
  Country: US (occurrence: US)
  Receive Date: 20210330
  Receipt Date: 20210330
  Transmission Date: 20210420
  Serious: Yes (Hospitalization)
  Sender: FDA-Public Use
  Company Number: US-BAUSCH-BL-2021-010874

PATIENT
  Age: 68 Year
  Sex: Female

DRUGS (1)
  1. XIFAXAN [Suspect]
     Active Substance: RIFAXIMIN
     Indication: HEPATIC ENCEPHALOPATHY
     Dosage: MISSED DOSES IN MAR/2021
     Route: 048
     Dates: end: 202103

REACTIONS (3)
  - Intra-abdominal fluid collection [Unknown]
  - Product dose omission issue [Unknown]
  - Abdominal infection [Unknown]

NARRATIVE: CASE EVENT DATE: 202103
